FAERS Safety Report 21696746 (Version 1)
Quarter: 2022Q4

REPORT INFORMATION
  Report Type: Report from Study
  Country: US (occurrence: US)
  Receive Date: 20221207
  Receipt Date: 20221207
  Transmission Date: 20230113
  Serious: Yes (Other)
  Sender: FDA-Public Use
  Company Number: US-ABBVIE-4227887

PATIENT
  Sex: Female

DRUGS (18)
  1. RINVOQ [Suspect]
     Active Substance: UPADACITINIB
     Indication: Rheumatoid arthritis
     Route: 048
     Dates: start: 20211206
  2. FOLIC ACID [Concomitant]
     Active Substance: FOLIC ACID
     Indication: Product used for unknown indication
  3. TRAZODONE HCL 100MG [Concomitant]
     Indication: Product used for unknown indication
  4. SERTRALINE HCL 100MG [Concomitant]
     Indication: Product used for unknown indication
  5. PRIMIDONE [Concomitant]
     Active Substance: PRIMIDONE
     Indication: Product used for unknown indication
  6. FLUTICASONE 50MCG/AC [Concomitant]
     Indication: Product used for unknown indication
     Dosage: SUS
  7. TOUJEO MAX S 300UNIT [Concomitant]
     Indication: Product used for unknown indication
     Dosage: SOP
  8. METFORMIN HC 1000MG [Concomitant]
     Indication: Product used for unknown indication
  9. LISPRO INSULIN 100UNIT [Concomitant]
     Indication: Product used for unknown indication
     Dosage: SOLUTION
  10. MONTELUKAST 10MG, [Concomitant]
     Indication: Product used for unknown indication
  11. GEMFIBROZIL  600MG [Concomitant]
     Indication: Product used for unknown indication
  12. BUSPIRONE HC 30MG [Concomitant]
     Indication: Product used for unknown indication
  13. LEVOTHYROXIN 50MCG [Concomitant]
     Indication: Product used for unknown indication
  14. NYSTATIN  10000UNIT/G [Concomitant]
     Indication: Product used for unknown indication
  15. PANTOPRAZOLE SODIUM [Concomitant]
     Active Substance: PANTOPRAZOLE SODIUM
     Indication: Product used for unknown indication
     Dosage: TBE
  16. LISINOPRIL [Concomitant]
     Active Substance: LISINOPRIL
     Indication: Product used for unknown indication
  17. METHOTREXATE [Concomitant]
     Active Substance: METHOTREXATE
     Indication: Product used for unknown indication
  18. VALACYCLOVIR [Concomitant]
     Active Substance: VALACYCLOVIR HYDROCHLORIDE
     Indication: Product used for unknown indication
     Dosage: 1GM

REACTIONS (1)
  - Surgery [Not Recovered/Not Resolved]
